FAERS Safety Report 6962365-6 (Version None)
Quarter: 2010Q3

REPORT INFORMATION
  Report Type: 
  Country: None (occurrence: None)
  Receive Date: 20100902
  Receipt Date: 20100819
  Transmission Date: 20110219
  Serious: Yes (Other)
  Sender: FDA-Public Use
  Company Number: US-BAYER-201037148GPV

PATIENT
  Age: 63 Year
  Sex: Female

DRUGS (10)
  1. ALEMTUZUMAB [Suspect]
     Indication: LYMPHOCYTIC LEUKAEMIA
     Dosage: DAY 1
     Route: 042
     Dates: start: 20020201
  2. ALEMTUZUMAB [Suspect]
     Dosage: DAY 2
     Route: 042
  3. ALEMTUZUMAB [Suspect]
     Dosage: DAY 3
     Route: 042
  4. ALEMTUZUMAB [Suspect]
     Dosage: ON DAYS 4 - 43
     Route: 042
  5. ALEMTUZUMAB [Suspect]
     Dosage: ON DAYS 44 - 65
     Route: 042
  6. ALEMTUZUMAB [Suspect]
     Route: 042
  7. ALEMTUZUMAB [Suspect]
     Dosage: EVERY 6-8 WEEKS
     Route: 058
  8. ALEMTUZUMAB [Suspect]
     Dosage: AUGMENTATION
  9. TRIMETHOPRIM + SULFAMETHOXAZOLE [Concomitant]
     Indication: ANTIFUNGAL PROPHYLAXIS
  10. PENTAMIDINE ISETHIONATE [Concomitant]
     Indication: INFECTION PROPHYLAXIS

REACTIONS (4)
  - AUTOIMMUNE THROMBOCYTOPENIA [None]
  - MEGAKARYOCYTES INCREASED [None]
  - NEUTROPHIL COUNT DECREASED [None]
  - THROMBOCYTOPENIA [None]
